FAERS Safety Report 6426738-2 (Version None)
Quarter: 2009Q4

REPORT INFORMATION
  Report Type: 
  Country: None (occurrence: None)
  Receive Date: 20091104
  Receipt Date: 20091026
  Transmission Date: 20100525
  Serious: Yes (Other)
  Sender: FDA-Public Use
  Company Number: US-BRACCO-001118

PATIENT
  Age: 52 Year
  Sex: Female

DRUGS (4)
  1. ISOVUE-370 [Suspect]
     Indication: COMPUTERISED TOMOGRAM
     Route: 042
     Dates: start: 20060901, end: 20060901
  2. ISOVUE-370 [Suspect]
     Indication: ABDOMINAL PAIN
     Route: 042
     Dates: start: 20060901, end: 20060901
  3. ISOVUE-370 [Suspect]
     Indication: AORTIC ANEURYSM REPAIR
     Dosage: PATIENT RECEIVED MULTIPLE DOSES, TOTALING 300 ML
     Route: 042
     Dates: start: 20060901, end: 20060901
  4. ISOVUE-370 [Suspect]
     Indication: AORTIC ANEURYSM
     Dosage: PATIENT RECEIVED MULTIPLE DOSES, TOTALING 300 ML
     Route: 042
     Dates: start: 20060901, end: 20060901

REACTIONS (1)
  - DEAFNESS NEUROSENSORY [None]
